FAERS Safety Report 23462273 (Version 1)
Quarter: 2024Q1

REPORT INFORMATION
  Report Type: Spontaneous
  Country: ZA (occurrence: ZA)
  Receive Date: 20240131
  Receipt Date: 20240131
  Transmission Date: 20240409
  Serious: Yes (Other)
  Sender: FDA-Public Use
  Company Number: ZA-NAPPMUNDI-GBR-2023-0112563

PATIENT
  Age: 90 Year
  Sex: Female

DRUGS (2)
  1. BUPRENORPHINE [Suspect]
     Active Substance: BUPRENORPHINE
     Indication: Product used for unknown indication
     Dosage: 10 MILLIGRAM
     Route: 062
  2. BUPRENORPHINE [Suspect]
     Active Substance: BUPRENORPHINE
     Dosage: 15MG (ADDED 5MG TO PREVIOUS 10MG DOSE).
     Route: 062

REACTIONS (2)
  - Pemphigoid [Unknown]
  - Drug ineffective [Unknown]
